FAERS Safety Report 5480157-4 (Version None)
Quarter: 2007Q4

REPORT INFORMATION
  Report Type: 
  Country: None (occurrence: None)
  Receive Date: 20071003
  Receipt Date: 20070827
  Transmission Date: 20080405
  Serious: Yes (Other)
  Sender: FDA-Public Use
  Company Number: 6037469

PATIENT
  Age: 42 Year
  Sex: Female

DRUGS (6)
  1. CYTARABINE [Suspect]
  2. ETOPOSIDE [Suspect]
  3. CAMPATH [Suspect]
     Indication: IMMUNOSUPPRESSANT DRUG THERAPY
  4. CARMUSTINE [Suspect]
     Indication: IMMUNOSUPPRESSANT DRUG THERAPY
  5. MELPHALAN(MELPHALAN) [Concomitant]
     Indication: IMMUNOSUPPRESSANT DRUG THERAPY
  6. ACYCLOVIR [Concomitant]

REACTIONS (6)
  - HERPES ZOSTER [None]
  - HYPERKERATOSIS [None]
  - PANCYTOPENIA [None]
  - RASH PAPULAR [None]
  - SKIN NECROSIS [None]
  - STEM CELL TRANSPLANT [None]
